FAERS Safety Report 5009954-6 (Version None)
Quarter: 2006Q2

REPORT INFORMATION
  Report Type: 
  Country: None (occurrence: None)
  Receive Date: 20060522
  Receipt Date: 20060515
  Transmission Date: 20061013
  Serious: Yes (Death, Other)
  Sender: FDA-Public Use
  Company Number: 2005152504

PATIENT
  Age: 45 Year
  Sex: Female

DRUGS (1)
  1. SULFASALAZINE [Suspect]
     Indication: ARTHRITIS

REACTIONS (3)
  - BLOOD DISORDER [None]
  - IDIOPATHIC PULMONARY FIBROSIS [None]
  - WHITE BLOOD CELL COUNT DECREASED [None]
